FAERS Safety Report 10973943 (Version 2)
Quarter: 2015Q4

REPORT INFORMATION
  Report Type: Spontaneous
  Country: US (occurrence: US)
  Receive Date: 20150401
  Receipt Date: 20151103
  Transmission Date: 20160304
  Serious: Yes (Death, Hospitalization, Other)
  Sender: FDA-Public Use
  Company Number: US-009507513-1503USA014832

PATIENT
  Sex: Female
  Weight: 72.56 kg

DRUGS (1)
  1. JANUVIA [Suspect]
     Active Substance: SITAGLIPTIN PHOSPHATE
     Indication: TYPE 2 DIABETES MELLITUS
     Dosage: 1/2-1 TAB, QD DEPENDING ON ACCUCHECK
     Route: 048
     Dates: start: 20090119, end: 201106

REACTIONS (5)
  - Pancreatic carcinoma [Fatal]
  - Pancreatitis [Unknown]
  - Bile duct stent insertion [Unknown]
  - Wrong technique in product usage process [Unknown]
  - Pancreatic mass [Unknown]

NARRATIVE: CASE EVENT DATE: 20090119
